FAERS Safety Report 13655547 (Version 2)
Quarter: 2017Q3

REPORT INFORMATION
  Report Type: Spontaneous
  Country: US (occurrence: US)
  Receive Date: 20170615
  Receipt Date: 20170810
  Transmission Date: 20171127
  Serious: Yes (Hospitalization, Other)
  Sender: FDA-Public Use
  Company Number: US-GLAXOSMITHKLINE-US2017088106

PATIENT
  Age: 53 Year
  Sex: Male

DRUGS (2)
  1. SORIATANE [Suspect]
     Active Substance: ACITRETIN
     Dosage: 20 MG, QD
  2. SORIATANE [Suspect]
     Active Substance: ACITRETIN
     Indication: PSORIASIS
     Dosage: 10 MG, QD

REACTIONS (4)
  - Colon cancer [Unknown]
  - Colonoscopy [Recovered/Resolved]
  - Colectomy total [Recovered/Resolved]
  - Haematochezia [Recovered/Resolved]

NARRATIVE: CASE EVENT DATE: 201704
